FAERS Safety Report 18432452 (Version 1)
Quarter: 2020Q4

REPORT INFORMATION
  Report Type: Spontaneous
  Country: IT (occurrence: IT)
  Receive Date: 20201027
  Receipt Date: 20201027
  Transmission Date: 20210114
  Serious: Yes (Hospitalization)
  Sender: FDA-Public Use
  Company Number: IT-PFIZER INC-2020412001

PATIENT
  Age: 32 Year
  Sex: Female

DRUGS (5)
  1. COCAINE [Suspect]
     Active Substance: COCAINE
     Dosage: UNK
  2. EN [Suspect]
     Active Substance: DELORAZEPAM
     Indication: AGITATION
     Dosage: 30 DROP, SINGLE
     Route: 048
     Dates: start: 20180402, end: 20180403
  3. MINIAS [Suspect]
     Active Substance: LORMETAZEPAM
     Indication: AGITATION
     Dosage: 1 DF, SINGLE
     Route: 049
     Dates: start: 20180402, end: 20180403
  4. CANNABIS [Suspect]
     Active Substance: CANNABIS SATIVA SUBSP. INDICA TOP
     Dosage: UNK
  5. HALCION [Suspect]
     Active Substance: TRIAZOLAM
     Indication: AGITATION
     Dosage: 2 DF, SINGLE
     Route: 048
     Dates: start: 20180402, end: 20180403

REACTIONS (7)
  - Bradyphrenia [Recovering/Resolving]
  - Drug abuse [Recovering/Resolving]
  - Disorganised speech [Recovering/Resolving]
  - Off label use [Unknown]
  - Product use in unapproved indication [Unknown]
  - Speech disorder [Recovering/Resolving]
  - Confusional state [Recovering/Resolving]

NARRATIVE: CASE EVENT DATE: 20180402
